FAERS Safety Report 14663852 (Version 1)
Quarter: 2018Q1

REPORT INFORMATION
  Report Type: Spontaneous
  Country: US (occurrence: US)
  Receive Date: 20180321
  Receipt Date: 20180321
  Transmission Date: 20180509
  Serious: Yes (Other)
  Sender: FDA-Public Use
  Company Number: US-SA-2018SA076942

PATIENT
  Age: 64 Year
  Sex: Male

DRUGS (1)
  1. BCG FOR IMMUNOTHERAPY [Suspect]
     Active Substance: BACILLUS CALMETTE-GUERIN ANTIGEN, UNSPECIFIED SUBSTRAIN
     Indication: BLADDER CANCER
     Route: 043

REACTIONS (12)
  - Disorientation [Unknown]
  - Acute kidney injury [Recovered/Resolved]
  - Hypercalcaemia [Recovered/Resolved]
  - Night sweats [Unknown]
  - Malaise [Unknown]
  - Cystitis [Unknown]
  - Granuloma [Recovered/Resolved]
  - Polyuria [Unknown]
  - Hepatic enzyme increased [Unknown]
  - Sepsis [Unknown]
  - Pyrexia [Unknown]
  - Polydipsia [Unknown]
